FAERS Safety Report 12742233 (Version 1)
Quarter: 2016Q3

REPORT INFORMATION
  Report Type: Spontaneous
  Country: US (occurrence: US)
  Receive Date: 20160914
  Receipt Date: 20160914
  Transmission Date: 20161109
  Serious: No
  Sender: FDA-Public Use
  Company Number: None

PATIENT
  Age: 59 Year
  Sex: Female
  Weight: 81 kg

DRUGS (2)
  1. MISOPROSTOL. [Suspect]
     Active Substance: MISOPROSTOL
     Indication: MEDICAL PROCEDURE
     Dosage: OTHER STRENGTH:MCG;OTHER DOSE:;OTHER FREQUENCY:TAKE 2 TABLETS;OTHER ROUTE:
     Route: 048
     Dates: start: 20160911, end: 20160911
  2. CENTRUM IROBN [Concomitant]

REACTIONS (5)
  - Pain [None]
  - Blood pressure increased [None]
  - Muscle spasms [None]
  - Heart rate increased [None]
  - Nausea [None]

NARRATIVE: CASE EVENT DATE: 20160911
